FAERS Safety Report 16148152 (Version 4)
Quarter: 2019Q3

REPORT INFORMATION
  Report Type: Spontaneous
  Country: US (occurrence: US)
  Receive Date: 20190402
  Receipt Date: 20190802
  Transmission Date: 20191004
  Serious: No
  Sender: FDA-Public Use
  Company Number: US-PFIZER INC-2019134828

PATIENT
  Age: 65 Year
  Sex: Female
  Weight: 70 kg

DRUGS (5)
  1. PERJETA [Concomitant]
     Active Substance: PERTUZUMAB
     Indication: HORMONE THERAPY
     Dosage: UNK
     Dates: start: 20150501, end: 20180504
  2. HERCEPTIN [Concomitant]
     Active Substance: TRASTUZUMAB
     Indication: CHEMOTHERAPY
     Dosage: UNK
  3. TAXOTERE [Suspect]
     Active Substance: DOCETAXEL
     Indication: BREAST CANCER METASTATIC
     Dosage: 120 MG, CYCLIC (12 CYCLES, EVERY THREE WEEKS)
     Dates: start: 20150501, end: 20160115
  4. TOPROL XL [Concomitant]
     Active Substance: METOPROLOL SUCCINATE
     Dosage: UNK
     Dates: start: 2012
  5. DOCETAXEL. [Suspect]
     Active Substance: DOCETAXEL
     Indication: BREAST CANCER METASTATIC
     Dosage: 120 MG, CYCLIC (12 CYCLES, EVERY THREE WEEKS)
     Dates: start: 20150501, end: 20160115

REACTIONS (5)
  - Hair texture abnormal [Recovered/Resolved]
  - Madarosis [Recovered/Resolved]
  - Hair disorder [Recovered/Resolved]
  - Hair colour changes [Recovered/Resolved]
  - Alopecia [Recovered/Resolved]

NARRATIVE: CASE EVENT DATE: 201607
